FAERS Safety Report 9988241 (Version 2)
Quarter: 2014Q1

REPORT INFORMATION
  Report Type: Spontaneous
  Country: US (occurrence: US)
  Receive Date: 20140309
  Receipt Date: 20140314
  Transmission Date: 20141002
  Serious: No
  Sender: FDA-Public Use
  Company Number: US-009507513-1403USA002275

PATIENT
  Sex: 0

DRUGS (1)
  1. DEXAMETHASONE [Suspect]
     Indication: NEONATAL LUPUS ERYTHEMATOSUS
     Dosage: CUMULATIVE DOSE RANGING FROM 12 - 693 MG
     Route: 064

REACTIONS (1)
  - Foetal exposure during pregnancy [Recovered/Resolved]
